FAERS Safety Report 21751567 (Version 1)
Quarter: 2022Q4

REPORT INFORMATION
  Report Type: Spontaneous
  Country: US (occurrence: US)
  Receive Date: 20221220
  Receipt Date: 20221220
  Transmission Date: 20230113
  Serious: No
  Sender: FDA-Public Use
  Company Number: US-SA-SAC20221219000063

PATIENT
  Sex: Female
  Weight: 86 kg

DRUGS (17)
  1. DUPIXENT [Suspect]
     Active Substance: DUPILUMAB
     Indication: Dermatitis atopic
     Dosage: 300 MG, QOW
     Route: 058
  2. ZINC [Concomitant]
     Active Substance: ZINC
  3. CALCIUM [Concomitant]
     Active Substance: CALCIUM
  4. ASCORBIC ACID [Concomitant]
     Active Substance: ASCORBIC ACID
  5. HYDROXYZINE HYDROCHLORIDE [Concomitant]
     Active Substance: HYDROXYZINE HYDROCHLORIDE
  6. ROBAXIN [Concomitant]
     Active Substance: METHOCARBAMOL
  7. ACETAMINOPHEN\HYDROCODONE BITARTRATE [Concomitant]
     Active Substance: ACETAMINOPHEN\HYDROCODONE BITARTRATE
  8. POTASSIUM CHLORIDE [Concomitant]
     Active Substance: POTASSIUM CHLORIDE
  9. GABAPENTIN [Concomitant]
     Active Substance: GABAPENTIN
  10. LEVOTHYROXINE SODIUM;POTASSIUM IODIDE [Concomitant]
  11. SIMVASTATIN [Concomitant]
     Active Substance: SIMVASTATIN
  12. OMEPRAZOLE [Concomitant]
     Active Substance: OMEPRAZOLE
  13. ESTRADIOL [Concomitant]
     Active Substance: ESTRADIOL
  14. LOSARTAN POTASSIUM [Concomitant]
     Active Substance: LOSARTAN POTASSIUM
  15. METOPROLOL SUCCINATE [Concomitant]
     Active Substance: METOPROLOL SUCCINATE
  16. ASPIRIN [Concomitant]
     Active Substance: ASPIRIN
  17. VITAMIN D NOS [Concomitant]
     Active Substance: VITAMIN D NOS

REACTIONS (2)
  - Skin exfoliation [Not Recovered/Not Resolved]
  - Dry skin [Not Recovered/Not Resolved]
